FAERS Safety Report 10668707 (Version 1)
Quarter: 2014Q4

REPORT INFORMATION
  Report Type: Spontaneous
  Country: NO (occurrence: NO)
  Receive Date: 20141222
  Receipt Date: 20141222
  Transmission Date: 20150529
  Serious: Yes (Death)
  Sender: FDA-Public Use
  Company Number: NO-MYLANLABS-2014M1015231

PATIENT

DRUGS (5)
  1. DIAZEPAM. [Suspect]
     Active Substance: DIAZEPAM
     Route: 048
  2. NORDAZEPAM [Suspect]
     Active Substance: NORDAZEPAM
     Route: 048
  3. PHENAZEPAM [Suspect]
     Active Substance: PHENAZEPAM
     Route: 048
  4. ETIZOLAM [Suspect]
     Active Substance: ETIZOLAM
     Route: 048
  5. OXAZEPAM. [Suspect]
     Active Substance: OXAZEPAM
     Route: 048

REACTIONS (3)
  - Respiratory depression [Fatal]
  - Toxicity to various agents [Fatal]
  - Drug abuse [Fatal]
